FAERS Safety Report 9606228 (Version 1)
Quarter: 2013Q4

REPORT INFORMATION
  Report Type: Spontaneous
  Country: US (occurrence: US)
  Receive Date: 20131008
  Receipt Date: 20131008
  Transmission Date: 20140711
  Serious: No
  Sender: FDA-Public Use
  Company Number: US-AMGEN-USASP2013047569

PATIENT
  Age: 74 Year
  Sex: Female

DRUGS (4)
  1. PROLIA [Suspect]
     Indication: OSTEOPOROSIS POSTMENOPAUSAL
  2. ASPIRIN [Concomitant]
  3. CALTRATE                           /00944201/ [Concomitant]
  4. MULTIVITAMIN                       /00097801/ [Concomitant]

REACTIONS (3)
  - Inappropriate schedule of drug administration [Unknown]
  - Pruritus [Recovering/Resolving]
  - Rash [Not Recovered/Not Resolved]
